FAERS Safety Report 8047244-8 (Version None)
Quarter: 2012Q1

REPORT INFORMATION
  Report Type: 
  Country: None (occurrence: None)
  Receive Date: 20120116
  Receipt Date: 20120111
  Transmission Date: 20120608
  Serious: Yes (Hospitalization, Other)
  Sender: FDA-Public Use
  Company Number: US-ABBOTT-11P-163-0705093-00

PATIENT
  Sex: Female

DRUGS (22)
  1. HUMIRA [Suspect]
     Indication: CROHN'S DISEASE
     Route: 058
     Dates: start: 20101012, end: 20110121
  2. METFORMIN HCL [Concomitant]
     Indication: DIABETES MELLITUS
  3. ZOFRAN [Concomitant]
     Indication: PRODUCT USED FOR UNKNOWN INDICATION
  4. HYDROCODONE BITARTRATE [Concomitant]
     Indication: PRODUCT USED FOR UNKNOWN INDICATION
  5. VITAMIN B-12 [Concomitant]
     Indication: PRODUCT USED FOR UNKNOWN INDICATION
  6. ACIPHEX [Concomitant]
     Indication: GASTROOESOPHAGEAL REFLUX DISEASE
  7. LORAZEPAM [Concomitant]
     Indication: PRODUCT USED FOR UNKNOWN INDICATION
  8. ABILIFY [Concomitant]
     Indication: DEPRESSION
  9. HUMIRA [Suspect]
     Route: 058
     Dates: start: 20111101
  10. MULTI-VITAMIN [Concomitant]
     Indication: PRODUCT USED FOR UNKNOWN INDICATION
  11. METOPROLOL TARTRATE [Concomitant]
     Indication: HYPERTENSION
  12. PENTASA [Concomitant]
     Indication: CROHN'S DISEASE
  13. PRIMAL DEFENSE PROBIOTIC [Concomitant]
     Indication: PRODUCT USED FOR UNKNOWN INDICATION
  14. IRON [Concomitant]
     Indication: PRODUCT USED FOR UNKNOWN INDICATION
  15. AMARYL [Concomitant]
     Indication: DIABETES MELLITUS
  16. ELAVIL [Concomitant]
     Indication: PRODUCT USED FOR UNKNOWN INDICATION
  17. HUMIRA [Suspect]
     Route: 058
     Dates: start: 20110101, end: 20111101
  18. SIMVASTATIN [Concomitant]
     Indication: BLOOD CHOLESTEROL INCREASED
  19. ZOCOR [Concomitant]
     Indication: PRODUCT USED FOR UNKNOWN INDICATION
  20. LAMICTAL [Concomitant]
     Indication: PRODUCT USED FOR UNKNOWN INDICATION
  21. PAXIL [Concomitant]
     Indication: DEPRESSION
  22. COLACE [Concomitant]
     Indication: PRODUCT USED FOR UNKNOWN INDICATION

REACTIONS (14)
  - FUNGAL INFECTION [None]
  - UPPER RESPIRATORY TRACT INFECTION [None]
  - HAEMOGLOBIN DECREASED [None]
  - DRUG EFFECT DECREASED [None]
  - NEPHROLITHIASIS [None]
  - DYSURIA [None]
  - BLOOD GLUCOSE INCREASED [None]
  - FLANK PAIN [None]
  - ABDOMINAL PAIN UPPER [None]
  - URINARY TRACT INFECTION [None]
  - CANDIDIASIS [None]
  - INJECTION SITE PAIN [None]
  - INSOMNIA [None]
  - CROHN'S DISEASE [None]
